FAERS Safety Report 25230158 (Version 1)
Quarter: 2025Q2

REPORT INFORMATION
  Report Type: Spontaneous
  Country: US (occurrence: US)
  Receive Date: 20250423
  Receipt Date: 20250423
  Transmission Date: 20250716
  Serious: Yes (Other)
  Sender: PFIZER
  Company Number: US-PFIZER INC-202500082986

PATIENT
  Age: 70 Year
  Sex: Male

DRUGS (1)
  1. XELJANZ XR [Suspect]
     Active Substance: TOFACITINIB CITRATE
     Dosage: TAKE 1 TABLET BY MOUTH EVERY DAY
     Route: 048

REACTIONS (6)
  - Chronic kidney disease [Unknown]
  - Joint stiffness [Unknown]
  - Arthralgia [Unknown]
  - Back pain [Unknown]
  - Glomerular filtration rate decreased [Unknown]
  - Osteoarthritis [Unknown]
